FAERS Safety Report 12383041 (Version 1)
Quarter: 2016Q2

REPORT INFORMATION
  Report Type: Report from Study
  Country: VE (occurrence: VE)
  Receive Date: 20160518
  Receipt Date: 20160518
  Transmission Date: 20160815
  Serious: Yes (Other)
  Sender: FDA-Public Use
  Company Number: PHHY2016VE066964

PATIENT
  Sex: Female

DRUGS (7)
  1. FORADIL [Suspect]
     Active Substance: FORMOTEROL FUMARATE
     Indication: ASTHMA
     Dosage: 400 UG, QD
     Route: 055
  2. MIFLONIDE [Suspect]
     Active Substance: BUDESONIDE
     Indication: ASTHMA
     Dosage: 24 UG, QD
     Route: 055
  3. XOLAIR [Suspect]
     Active Substance: OMALIZUMAB
     Dosage: PRESCRIBED HIGHER DOSE
     Route: 065
  4. XOLAIR [Suspect]
     Active Substance: OMALIZUMAB
     Dosage: 300 MG, UNK
     Route: 065
  5. BERODUAL [Concomitant]
     Active Substance: FENOTEROL HYDROBROMIDE\IPRATROPIUM BROMIDE
     Indication: DYSPNOEA
     Dosage: 6 DRP, QD
     Route: 065
     Dates: start: 1994
  6. XOLAIR [Suspect]
     Active Substance: OMALIZUMAB
     Indication: ASTHMA
     Dosage: 750 MG, EVERY 15 DAYS
     Route: 065
     Dates: start: 2009
  7. ALOVENT//IPRATROPIUM BROMIDE [Concomitant]
     Indication: DYSPNOEA
     Dosage: 60 DRP, EVENTUALLY
     Route: 065
     Dates: start: 1994

REACTIONS (7)
  - Chest pain [Not Recovered/Not Resolved]
  - Asthma [Unknown]
  - Overdose [Unknown]
  - Dyspnoea exertional [Not Recovered/Not Resolved]
  - Choking [Not Recovered/Not Resolved]
  - Hypersensitivity [Not Recovered/Not Resolved]
  - Chest discomfort [Unknown]
